FAERS Safety Report 4831750-0 (Version None)
Quarter: 2005Q4

REPORT INFORMATION
  Report Type: 
  Country: None (occurrence: None)
  Receive Date: 20051116
  Receipt Date: 20051103
  Transmission Date: 20060501
  Serious: Yes (Hospitalization, Other)
  Sender: FDA-Public Use
  Company Number: A-US2005-10934

PATIENT
  Age: 68 Year
  Sex: Male
  Weight: 119.7 kg

DRUGS (9)
  1. TRACLEER [Suspect]
     Indication: PULMONARY HYPERTENSION
     Dosage: 125 MG BID ORAL
     Route: 048
     Dates: start: 20050901, end: 20051011
  2. AMARYL [Concomitant]
  3. ZOCOR [Concomitant]
  4. AVANDIA [Concomitant]
  5. ACETYLSALICYLIC ACID SRT [Concomitant]
  6. KCL TAB [Concomitant]
  7. LASIX [Concomitant]
  8. ALBUTEROL [Concomitant]
  9. ATROVENT [Concomitant]

REACTIONS (8)
  - CARDIAC FAILURE CONGESTIVE [None]
  - COR PULMONALE [None]
  - HYPOTENSION [None]
  - HYPOXIA [None]
  - LIVER FUNCTION TEST ABNORMAL [None]
  - OXYGEN SATURATION DECREASED [None]
  - RENAL FAILURE ACUTE [None]
  - WEIGHT INCREASED [None]
